FAERS Safety Report 8738645 (Version 2)
Quarter: 2012Q4

REPORT INFORMATION
  Report Type: 
  Country: NL (occurrence: NL)
  Receive Date: 20120823
  Receipt Date: 20121003
  Transmission Date: 20130627
  Serious: Yes (Disabling)
  Sender: FDA-Public Use
  Company Number: PHHY2012NL072375

PATIENT
  Age: 61 None
  Sex: Female
  Weight: 96 kg

DRUGS (12)
  1. ZOMETA [Suspect]
     Indication: METASTASES TO BONE
     Dosage: 4 mg/100 ml, 1x per 182 days, in 20 min
     Route: 042
     Dates: start: 20100803
  2. ZOMETA [Suspect]
     Dosage: 4 mg/100 ml, 1x per 182 days, in 20 min
     Route: 042
     Dates: start: 20120216
  3. ZOMETA [Suspect]
     Dosage: 4 mg/100 ml, 1x per 182 days, in 20 min
     Route: 042
     Dates: start: 20120821
  4. NEXIUM [Concomitant]
  5. METOPROLOL [Concomitant]
  6. APROVEL [Concomitant]
  7. METFORMINE [Concomitant]
  8. EFEXOR [Concomitant]
  9. SIMVASTATIN [Concomitant]
  10. INSULIN [Concomitant]
  11. LETROZOLE [Concomitant]
  12. FASLODEX [Concomitant]

REACTIONS (2)
  - Fall [Recovering/Resolving]
  - Wrist fracture [Recovering/Resolving]
